FAERS Safety Report 5527247-5 (Version None)
Quarter: 2007Q4

REPORT INFORMATION
  Report Type: 
  Country: None (occurrence: None)
  Receive Date: 20071128
  Receipt Date: 20071116
  Transmission Date: 20080405
  Serious: Yes (Other)
  Sender: FDA-Public Use
  Company Number: A0662267A

PATIENT
  Age: 55 Year
  Sex: Female
  Weight: 97.3 kg

DRUGS (9)
  1. COREG [Suspect]
     Indication: HYPERTENSION
     Dosage: 25MG TWICE PER DAY
     Route: 048
     Dates: start: 20070101
  2. COREG CR [Suspect]
     Indication: HYPERTENSION
     Dosage: 80MG SINGLE DOSE
     Route: 048
     Dates: start: 20070626, end: 20070627
  3. FISH OIL [Concomitant]
     Dosage: 1000MG TWICE PER DAY
     Route: 048
  4. ASPIRIN [Concomitant]
     Dosage: 81MG PER DAY
     Route: 048
  5. ULTRA MEGA VITAMINS [Concomitant]
     Route: 048
  6. LIPITOR [Concomitant]
     Dosage: 20MG AT NIGHT
     Route: 048
  7. DYNACIRC CR [Concomitant]
     Dosage: 10MG TWICE PER DAY
     Route: 048
  8. VITAMIN D [Concomitant]
     Dosage: 1000UNIT PER DAY
     Route: 048
  9. BENICAR HCT [Concomitant]
     Dosage: 12.5MG IN THE MORNING
     Route: 048

REACTIONS (8)
  - DYSPHAGIA [None]
  - DYSPNOEA [None]
  - HAEMATURIA [None]
  - HYPERSENSITIVITY [None]
  - HYPERTENSION [None]
  - PROTEINURIA [None]
  - RASH [None]
  - SENSATION OF FOREIGN BODY [None]
